FAERS Safety Report 9486470 (Version 1)
Quarter: 2013Q3

REPORT INFORMATION
  Report Type: Spontaneous
  Country: GB (occurrence: GB)
  Receive Date: 20130829
  Receipt Date: 20130829
  Transmission Date: 20140515
  Serious: Yes (Other)
  Sender: FDA-Public Use
  Company Number: GB-SANOFI-AVENTIS-2013SA085380

PATIENT
  Age: 17 Year
  Sex: Female

DRUGS (2)
  1. RIFINAH [Suspect]
     Indication: TUBERCULOSIS
     Dosage: RIFAMPICIN 300MG / ISONIAZID 150MG
     Route: 048
     Dates: start: 20130723, end: 20130729
  2. RIFINAH [Suspect]
     Indication: TUBERCULOSIS
     Dosage: RIFAMPICIN 300MG / ISONIAZID 150MG
     Route: 048
     Dates: start: 20130805

REACTIONS (5)
  - Contusion [Not Recovered/Not Resolved]
  - Pain [Unknown]
  - Lethargy [Not Recovered/Not Resolved]
  - Skin mass [Not Recovered/Not Resolved]
  - Skin lesion [Unknown]
